FAERS Safety Report 16983512 (Version 2)
Quarter: 2019Q4

REPORT INFORMATION
  Report Type: Spontaneous
  Country: US (occurrence: US)
  Receive Date: 20191101
  Receipt Date: 20191114
  Transmission Date: 20200122
  Serious: Yes (Other)
  Sender: FDA-Public Use
  Company Number: US-JNJFOC-20191027829

PATIENT
  Sex: Male

DRUGS (1)
  1. ERLEADA [Suspect]
     Active Substance: APALUTAMIDE
     Indication: PRODUCT USED FOR UNKNOWN INDICATION
     Dosage: TAKE 4 TABLETS (60MG) TABLETS ONCE DAILY
     Route: 048

REACTIONS (3)
  - Weight increased [Unknown]
  - Pericardial effusion [Unknown]
  - Prostatic specific antigen increased [Recovered/Resolved]
